FAERS Safety Report 5709934-9 (Version None)
Quarter: 2008Q2

REPORT INFORMATION
  Report Type: 
  Country: None (occurrence: None)
  Receive Date: 20080418
  Receipt Date: 20080408
  Transmission Date: 20081010
  Serious: Yes (Other)
  Sender: FDA-Public Use
  Company Number: FR-ELI_LILLY_AND_COMPANY-FR200804001709

PATIENT
  Sex: Male

DRUGS (8)
  1. PROZAC [Suspect]
     Dosage: 20 MG, DAILY (1/D)
     Route: 048
     Dates: start: 20080110
  2. AMOXICILLIN W/CLAVULANIC ACID [Concomitant]
     Route: 048
  3. DI-ANTALVIC [Concomitant]
     Indication: PAIN
     Dosage: 2 D/F, 3/D
     Route: 048
     Dates: start: 20080122
  4. ESPERAL [Concomitant]
     Indication: ALCOHOLISM
     Dosage: 500 MG, DAILY (1/D)
     Route: 048
  5. TERCIAN [Concomitant]
     Dosage: 100 MG, DAILY (1/D)
     Route: 048
     Dates: start: 20071222
  6. NOCTRAN 10 [Concomitant]
     Dosage: 1 D/F, DAILY (1/D)
     Route: 048
     Dates: start: 20080108
  7. AERIUS [Concomitant]
     Indication: HYPERSENSITIVITY
     Dosage: 5 MG, DAILY (1/D)
     Route: 048
     Dates: start: 20080110
  8. ABILIFY [Concomitant]
     Dosage: 10 MG, DAILY (1/D)
     Route: 048
     Dates: start: 20080121

REACTIONS (3)
  - ERYTHEMA [None]
  - HYPOTENSION [None]
  - PRURITUS [None]
